FAERS Safety Report 11898191 (Version 1)
Quarter: 2016Q1

REPORT INFORMATION
  Report Type: Spontaneous
  Country: BR (occurrence: BR)
  Receive Date: 20160108
  Receipt Date: 20160108
  Transmission Date: 20160526
  Serious: Yes (Death, Hospitalization, Other)
  Sender: FDA-Public Use
  Company Number: BR-PFIZER INC-2015357978

PATIENT
  Age: 44 Year
  Sex: Male
  Weight: 93 kg

DRUGS (10)
  1. CARVEDILOL. [Concomitant]
     Active Substance: CARVEDILOL
     Dosage: UNK
  2. SUTENT [Suspect]
     Active Substance: SUNITINIB MALATE
     Indication: METASTATIC RENAL CELL CARCINOMA
     Dosage: 50 MG, CYCLIC (2X1)
     Route: 048
     Dates: start: 201410
  3. LOSARTAN. [Concomitant]
     Active Substance: LOSARTAN
     Dosage: UNK
  4. COLCHICINE. [Concomitant]
     Active Substance: COLCHICINE
     Dosage: UNK, STRENGTH 5MG
  5. SIMVASTATIN. [Concomitant]
     Active Substance: SIMVASTATIN
  6. DIPIRONA [Concomitant]
     Active Substance: METAMIZOLE
     Dosage: UNK
  7. AAS [Concomitant]
     Active Substance: ASPIRIN
     Dosage: UNK
  8. NIFEDIPINE. [Concomitant]
     Active Substance: NIFEDIPINE
     Dosage: UNK
  9. FUROSEMIDE. [Concomitant]
     Active Substance: FUROSEMIDE
     Dosage: UNK
  10. PARACETAMOL [Concomitant]
     Active Substance: ACETAMINOPHEN
     Dosage: UNK

REACTIONS (13)
  - Renal failure [Fatal]
  - Respiratory failure [Fatal]
  - Haematemesis [Not Recovered/Not Resolved]
  - Skin fissures [Recovering/Resolving]
  - Blood creatinine increased [Unknown]
  - Peripheral coldness [Unknown]
  - Cardiac arrest [Fatal]
  - Headache [Not Recovered/Not Resolved]
  - Decreased appetite [Not Recovered/Not Resolved]
  - Skin ulcer [Recovering/Resolving]
  - Swelling [Unknown]
  - Diarrhoea [Not Recovered/Not Resolved]
  - Vomiting [Unknown]

NARRATIVE: CASE EVENT DATE: 201510
